FAERS Safety Report 25685522 (Version 1)
Quarter: 2025Q3

REPORT INFORMATION
  Report Type: Report from Study
  Country: GB (occurrence: GB)
  Receive Date: 20250815
  Receipt Date: 20250815
  Transmission Date: 20251020
  Serious: Yes (Other)
  Sender: UCB
  Company Number: GB-UCBSA-2025050425

PATIENT

DRUGS (1)
  1. BRIVARACETAM [Suspect]
     Active Substance: BRIVARACETAM
     Indication: Epilepsy

REACTIONS (19)
  - Hallucination [Unknown]
  - Seizure [Unknown]
  - Dystonia [Unknown]
  - Behaviour disorder [Unknown]
  - Mood altered [Unknown]
  - Weight increased [Unknown]
  - Depersonalisation/derealisation disorder [Unknown]
  - Thinking abnormal [Unknown]
  - Skin irritation [Unknown]
  - Dysarthria [Unknown]
  - Headache [Unknown]
  - Nausea [Unknown]
  - Balance disorder [Unknown]
  - Fatigue [Unknown]
  - Sleep disorder [Unknown]
  - Sedation [Unknown]
  - Dizziness [Unknown]
  - Depression [Unknown]
  - Drug ineffective [Unknown]
